FAERS Safety Report 14630996 (Version 1)
Quarter: 2018Q1

REPORT INFORMATION
  Report Type: Spontaneous
  Country: US (occurrence: US)
  Receive Date: 20180313
  Receipt Date: 20180313
  Transmission Date: 20180509
  Serious: No
  Sender: FDA-Public Use
  Company Number: US-PERRIGO-18US002269

PATIENT
  Sex: Male

DRUGS (2)
  1. TESTOSTERONE. [Suspect]
     Active Substance: TESTOSTERONE
     Indication: ACCIDENTAL EXPOSURE TO PRODUCT
     Dosage: UNKNOWN, UNKNOWN
     Route: 061
     Dates: start: 201801, end: 20180206
  2. TESTOSTERONE. [Suspect]
     Active Substance: TESTOSTERONE
     Dosage: UNKNOWN, UNKNOWN
     Route: 061
     Dates: start: 20180207

REACTIONS (1)
  - Accidental exposure to product [Unknown]

NARRATIVE: CASE EVENT DATE: 201801
